FAERS Safety Report 7502207-3 (Version None)
Quarter: 2011Q2

REPORT INFORMATION
  Report Type: 
  Country: None (occurrence: None)
  Receive Date: 20110523
  Receipt Date: 20110523
  Transmission Date: 20111010
  Serious: No
  Sender: FDA-Public Use
  Company Number: None

PATIENT
  Age: 71 Year
  Sex: Male
  Weight: 109 kg

DRUGS (2)
  1. TRAMADOL HCL [Suspect]
     Indication: OSTEOARTHRITIS
     Dosage: 50 MG BID PO
     Route: 048
     Dates: start: 20101006, end: 20101006
  2. TRAMADOL HCL [Suspect]
     Indication: NEUROPATHY PERIPHERAL
     Dosage: 50 MG BID PO
     Route: 048
     Dates: start: 20101006, end: 20101006

REACTIONS (2)
  - RESPIRATORY DEPRESSION [None]
  - ANGINA PECTORIS [None]
